FAERS Safety Report 6591710-9 (Version None)
Quarter: 2010Q1

REPORT INFORMATION
  Report Type: 
  Country: None (occurrence: None)
  Receive Date: 20100221
  Receipt Date: 20090814
  Transmission Date: 20100710
  Serious: Yes (Hospitalization)
  Sender: FDA-Public Use
  Company Number: US-ALLERGAN-0908063US

PATIENT
  Age: 82 Year
  Sex: Male
  Weight: 54.422 kg

DRUGS (11)
  1. BOTOX [Suspect]
     Indication: FACIAL SPASM
     Dosage: UNK, SINGLE
     Dates: start: 20080901, end: 20080901
  2. SYMMETREL [Concomitant]
     Dosage: 100 MG, QD
     Route: 048
  3. OSCAL D [Concomitant]
     Dosage: 1 TAB
     Route: 048
  4. CELEXA [Concomitant]
     Indication: DEPRESSION
     Dosage: 1 CAP
     Route: 048
  5. PEPCID [Concomitant]
     Dosage: 20 MG, QD
     Route: 048
  6. VITAMIN E [Concomitant]
  7. OPTIVITE [Concomitant]
  8. REMERON [Concomitant]
     Indication: DEPRESSION
     Dosage: 45 MG, QHS
  9. MULTIPLE VITAMIN [Concomitant]
     Dosage: 1 TAB
  10. MIRALAX [Concomitant]
     Indication: CONSTIPATION
     Dosage: UNK
  11. ACETAMINOPHEN [Concomitant]
     Indication: PAIN
     Dosage: 100 MG, UNK

REACTIONS (3)
  - DYSPHAGIA [None]
  - FACIAL PALSY [None]
  - PNEUMONIA ASPIRATION [None]
